FAERS Safety Report 7514218-2 (Version None)
Quarter: 2011Q2

REPORT INFORMATION
  Report Type: 
  Country: None (occurrence: None)
  Receive Date: 20110531
  Receipt Date: 20101022
  Transmission Date: 20111010
  Serious: No
  Sender: FDA-Public Use
  Company Number: US-AMGEN-USASP2010001296

PATIENT

DRUGS (2)
  1. EPOGEN [Suspect]
     Indication: DIALYSIS
  2. ARANESP [Suspect]
     Indication: DIALYSIS

REACTIONS (1)
  - HYPERTENSION [None]
